FAERS Safety Report 26125203 (Version 1)
Quarter: 2025Q4

REPORT INFORMATION
  Report Type: Spontaneous
  Country: EU (occurrence: EU)
  Receive Date: 20251205
  Receipt Date: 20251205
  Transmission Date: 20260117
  Serious: Yes (Hospitalization, Other)
  Sender: BRACCO
  Company Number: None

PATIENT
  Age: 58 Year
  Sex: Female

DRUGS (1)
  1. IOPAMIDOL [Suspect]
     Active Substance: IOPAMIDOL
     Indication: Computerised tomogram
     Dosage: 1 DF, SINGLE
     Dates: start: 20251023, end: 20251023

REACTIONS (4)
  - Vomiting [Recovered/Resolved]
  - Pain in extremity [Recovered/Resolved]
  - Headache [Recovering/Resolving]
  - Agranulocytosis [Unknown]

NARRATIVE: CASE EVENT DATE: 20251023
